FAERS Safety Report 5223880-9 (Version None)
Quarter: 2007Q1

REPORT INFORMATION
  Report Type: 
  Country: None (occurrence: None)
  Receive Date: 20070130
  Receipt Date: 20070118
  Transmission Date: 20070707
  Serious: Yes (Hospitalization, Other)
  Sender: FDA-Public Use
  Company Number: HQWYE850318JAN07

PATIENT
  Age: 81 Year
  Sex: Female

DRUGS (6)
  1. AVLOCARDYL [Suspect]
     Route: 048
     Dates: start: 20041101
  2. PAROXETINE HCL [Concomitant]
     Dosage: UNSPECIFIED
     Route: 048
  3. SPECIAFOLDINE [Suspect]
     Route: 048
     Dates: start: 20041118
  4. LEXOMIL [Concomitant]
     Dosage: UNSPECIFIED
     Route: 048
  5. ALLOPURINOL SODIUM [Suspect]
     Route: 048
     Dates: start: 20041118
  6. THALIDOMIDE [Suspect]
     Route: 048
     Dates: start: 20041015, end: 20061102

REACTIONS (5)
  - ANTEROGRADE AMNESIA [None]
  - CONFUSIONAL STATE [None]
  - DISORIENTATION [None]
  - DISTURBANCE IN ATTENTION [None]
  - SPEECH DISORDER [None]
